FAERS Safety Report 7312064-6 (Version None)
Quarter: 2011Q1

REPORT INFORMATION
  Report Type: 
  Country: None (occurrence: None)
  Receive Date: 20110224
  Receipt Date: 20100908
  Transmission Date: 20110831
  Serious: No
  Sender: FDA-Public Use
  Company Number: US-BRISTOL-MYERS SQUIBB COMPANY-15276884

PATIENT
  Sex: Female

DRUGS (3)
  1. TAXOL [Suspect]
     Dates: start: 20070101
  2. CYTOXAN [Suspect]
  3. ADRIAMYCIN PFS [Suspect]

REACTIONS (3)
  - SENSORY LOSS [None]
  - PAIN IN JAW [None]
  - SWELLING FACE [None]
